FAERS Safety Report 21799824 (Version 1)
Quarter: 2022Q4

REPORT INFORMATION
  Report Type: Report from Study
  Country: US (occurrence: US)
  Receive Date: 20221230
  Receipt Date: 20221230
  Transmission Date: 20230113
  Serious: Yes (Hospitalization)
  Sender: FDA-Public Use
  Company Number: US-JNJFOC-20221244816

PATIENT

DRUGS (4)
  1. NIRAPARIB [Suspect]
     Active Substance: NIRAPARIB
     Indication: Prostate cancer
     Dosage: 200 MG, QD
     Route: 048
     Dates: start: 20221207
  2. CETRELIMAB [Suspect]
     Active Substance: CETRELIMAB
     Indication: Prostate cancer
     Dosage: UNK
     Route: 042
     Dates: start: 20220810, end: 20221114
  3. CARBOPLATIN [Suspect]
     Active Substance: CARBOPLATIN
     Indication: Prostate cancer
     Dosage: UNK
     Route: 042
     Dates: start: 20220810, end: 20221114
  4. CABAZITAXEL [Suspect]
     Active Substance: CABAZITAXEL
     Dates: start: 20220810

REACTIONS (1)
  - Atrial fibrillation [Unknown]

NARRATIVE: CASE EVENT DATE: 20221216
